FAERS Safety Report 5845685-8 (Version None)
Quarter: 2008Q3

REPORT INFORMATION
  Report Type: 
  Country: None (occurrence: None)
  Receive Date: 20080814
  Receipt Date: 20080804
  Transmission Date: 20090109
  Serious: Yes (Other)
  Sender: FDA-Public Use
  Company Number: PHBS2008US05387

PATIENT
  Age: 21 Year
  Sex: Female

DRUGS (6)
  1. CLOFAZIMINE [Suspect]
     Indication: TUBERCULOSIS
  2. CYCLOSERINE [Concomitant]
     Indication: TUBERCULOSIS
  3. MOXIFLOXACIN HCL [Concomitant]
     Indication: TUBERCULOSIS
  4. CAPREOMYCIN [Concomitant]
     Indication: TUBERCULOSIS
  5. ETHAMBUTOL HCL [Concomitant]
     Indication: TUBERCULOSIS
  6. LINEZOLID [Concomitant]
     Indication: TUBERCULOSIS

REACTIONS (4)
  - EOSINOPHILIA [None]
  - GASTROENTERITIS [None]
  - PNEUMONECTOMY [None]
  - PULMONARY TUBERCULOSIS [None]
